FAERS Safety Report 19179181 (Version 1)
Quarter: 2021Q2

REPORT INFORMATION
  Report Type: Spontaneous
  Country: GB (occurrence: GB)
  Receive Date: 20210426
  Receipt Date: 20210426
  Transmission Date: 20210717
  Serious: Yes (Hospitalization)
  Sender: FDA-Public Use
  Company Number: GB-TEVA-2021-GB-1903875

PATIENT
  Age: 58 Year
  Sex: Male
  Weight: 95.25 kg

DRUGS (3)
  1. INDAPAMIDE. [Suspect]
     Active Substance: INDAPAMIDE
     Indication: ANAPHYLACTIC REACTION
     Dosage: ONE TABLET
     Route: 048
     Dates: start: 20210414, end: 20210414
  2. AMLODIPINE [Concomitant]
     Active Substance: AMLODIPINE BESYLATE
     Indication: ILL-DEFINED DISORDER
  3. INDAPAMIDE. [Suspect]
     Active Substance: INDAPAMIDE
     Indication: ANAPHYLACTIC REACTION
     Dosage: ONE TABLET
     Route: 048
     Dates: start: 20210414, end: 20210414

REACTIONS (1)
  - Upper respiratory tract inflammation [Recovered/Resolved]

NARRATIVE: CASE EVENT DATE: 20210414
